FAERS Safety Report 16527258 (Version 3)
Quarter: 2020Q1

REPORT INFORMATION
  Report Type: Spontaneous
  Country: US (occurrence: US)
  Receive Date: 20190703
  Receipt Date: 20200206
  Transmission Date: 20200409
  Serious: Yes (Other)
  Sender: FDA-Public Use
  Company Number: US-SA-2019SA129838

PATIENT
  Age: 14 Year

DRUGS (2)
  1. ALPROLIX [Suspect]
     Active Substance: EFTRENONACOG ALFA
     Indication: HAEMORRHAGE
     Dosage: 2050 IU, QW AND PRN
     Route: 042
  2. ALPROLIX [Suspect]
     Active Substance: EFTRENONACOG ALFA
     Dosage: 2100 IU
     Route: 042

REACTIONS (2)
  - Muscle haemorrhage [Recovered/Resolved]
  - Joint dislocation [Unknown]

NARRATIVE: CASE EVENT DATE: 20190619
